FAERS Safety Report 25801071 (Version 1)
Quarter: 2025Q3

REPORT INFORMATION
  Report Type: Spontaneous
  Country: US (occurrence: US)
  Receive Date: 20250915
  Receipt Date: 20250915
  Transmission Date: 20251020
  Serious: No
  Sender: BIOCON
  Company Number: US-MIMS-BCONMC-7546

PATIENT

DRUGS (3)
  1. INSULIN GLARGINE [Suspect]
     Active Substance: INSULIN GLARGINE
     Indication: Diabetes mellitus
     Route: 065
  2. INSULIN GLARGINE [Suspect]
     Active Substance: INSULIN GLARGINE
  3. INSULIN GLARGINE [Suspect]
     Active Substance: INSULIN GLARGINE

REACTIONS (1)
  - Blood glucose increased [Unknown]
